FAERS Safety Report 4705788-8 (Version None)
Quarter: 2005Q3

REPORT INFORMATION
  Report Type: 
  Country: None (occurrence: None)
  Receive Date: 20050701
  Receipt Date: 20050624
  Transmission Date: 20060218
  Serious: Yes (Other)
  Sender: FDA-Public Use
  Company Number: CR-MERCK-0506CRI00003

PATIENT
  Age: 71 Year
  Sex: Female

DRUGS (6)
  1. VYTORIN [Suspect]
     Indication: DYSLIPIDAEMIA
     Route: 048
     Dates: start: 20050412, end: 20050420
  2. HYDROCHLOROTHIAZIDE AND VALSARTAN [Suspect]
     Indication: HYPERTENSION
     Route: 048
     Dates: start: 19990101
  3. CARVEDILOL [Concomitant]
     Indication: HYPERTENSION
     Route: 048
     Dates: start: 19990101
  4. LEVOTHYROXINE SODIUM [Concomitant]
     Indication: HYPOTHYROIDISM
     Route: 048
     Dates: start: 19990101
  5. AMIODARONE HYDROCHLORIDE [Concomitant]
     Indication: ARRHYTHMIA
     Route: 048
     Dates: start: 19970101
  6. TRIMETAZIDINE HYDROCHLORIDE [Concomitant]
     Indication: VERTIGO
     Route: 048
     Dates: start: 20050301

REACTIONS (1)
  - ORAL PAIN [None]
